FAERS Safety Report 23523227 (Version 5)
Quarter: 2025Q2

REPORT INFORMATION
  Report Type: Report from Study
  Country: BR (occurrence: BR)
  Receive Date: 20240214
  Receipt Date: 20250630
  Transmission Date: 20250716
  Serious: Yes (Other)
  Sender: NOVARTIS
  Company Number: BR-002147023-NVSC2023BR201587

PATIENT
  Age: 51 Year
  Sex: Female
  Weight: 66 kg

DRUGS (9)
  1. KISQALI [Suspect]
     Active Substance: RIBOCICLIB SUCCINATE
     Indication: Invasive breast carcinoma
     Route: 048
     Dates: start: 202305
  2. KISQALI [Suspect]
     Active Substance: RIBOCICLIB SUCCINATE
     Indication: Breast cancer female
     Dosage: 1 DOSAGE FORM, TID
     Route: 048
  3. KISQALI [Suspect]
     Active Substance: RIBOCICLIB SUCCINATE
     Indication: Metastases to breast
     Dosage: 3 DOSAGE FORM, QD
     Route: 048
  4. ZOMETA [Suspect]
     Active Substance: ZOLEDRONIC ACID
     Indication: Breast cancer
     Dosage: UNK, Q3MO
     Route: 042
  5. ZOMETA [Suspect]
     Active Substance: ZOLEDRONIC ACID
     Indication: Metastases to bone
  6. ANASTROZOLE [Suspect]
     Active Substance: ANASTROZOLE
     Indication: Breast cancer
     Dosage: UNK, Q3MO
     Route: 048
     Dates: start: 2022
  7. ANASTROZOLE [Suspect]
     Active Substance: ANASTROZOLE
     Indication: Metastases to bone
     Dosage: 1 DOSAGE FORM, QD
     Route: 048
  8. KETOCONAZOLE [Suspect]
     Active Substance: KETOCONAZOLE
     Indication: Product used for unknown indication
     Route: 065
  9. DULOXETINE [Concomitant]
     Active Substance: DULOXETINE
     Indication: Product used for unknown indication
     Dosage: 1 DOSAGE FORM, QD
     Route: 048

REACTIONS (14)
  - Pruritus [Recovering/Resolving]
  - Alopecia [Not Recovered/Not Resolved]
  - Skin exfoliation [Not Recovered/Not Resolved]
  - Sunburn [Not Recovered/Not Resolved]
  - Scratch [Unknown]
  - Onychoclasis [Not Recovered/Not Resolved]
  - Sensitive skin [Recovering/Resolving]
  - Skin disorder [Recovering/Resolving]
  - Rash macular [Recovering/Resolving]
  - Pain of skin [Unknown]
  - Hot flush [Unknown]
  - Erythema [Unknown]
  - Skin irritation [Unknown]
  - Drug ineffective [Unknown]

NARRATIVE: CASE EVENT DATE: 20230601
